FAERS Safety Report 23204269 (Version 1)
Quarter: 2023Q4

REPORT INFORMATION
  Report Type: Report from Study
  Country: US (occurrence: US)
  Receive Date: 20231120
  Receipt Date: 20231120
  Transmission Date: 20240109
  Serious: Yes (Death)
  Sender: FDA-Public Use
  Company Number: US-ABBVIE-5499471

PATIENT
  Sex: Female

DRUGS (1)
  1. LEVOTHYROXINE [Suspect]
     Active Substance: LEVOTHYROXINE
     Indication: Product used for unknown indication
     Dosage: FORM STRENGTH: 75 MICROGRAM?START DATE TEXT: UNKNOWN
     Route: 048
     Dates: end: 20231031

REACTIONS (2)
  - Cerebral haemorrhage [Fatal]
  - Diabetes mellitus [Unknown]
